FAERS Safety Report 25362829 (Version 1)
Quarter: 2025Q2

REPORT INFORMATION
  Report Type: Spontaneous
  Country: US (occurrence: None)
  Receive Date: 20250523
  Receipt Date: 20250523
  Transmission Date: 20250716
  Serious: Yes (Death)
  Sender: FDA-CTU
  Company Number: None

PATIENT
  Age: 89 Year
  Sex: Male

DRUGS (17)
  1. PIRFENIDONE [Suspect]
     Active Substance: PIRFENIDONE
     Indication: Interstitial lung disease
     Dosage: 267MG TID ORAL
     Route: 048
     Dates: start: 20210603, end: 20250516
  2. LORAZEPAM [Concomitant]
     Active Substance: LORAZEPAM
  3. ACETAMINOPHEN [Concomitant]
     Active Substance: ACETAMINOPHEN
  4. surgilube top gel [Concomitant]
  5. Atropine opht drop [Concomitant]
  6. ACETAMINOPHEN [Concomitant]
     Active Substance: ACETAMINOPHEN
  7. HYDROMORPHONE [Concomitant]
     Active Substance: HYDROMORPHONE
  8. PHENOBARBITAL [Concomitant]
     Active Substance: PHENOBARBITAL
  9. HALOPERIDOL [Concomitant]
     Active Substance: HALOPERIDOL
  10. DUONEB [Concomitant]
     Active Substance: ALBUTEROL SULFATE\IPRATROPIUM BROMIDE
  11. ALBUTEROL SULFATE [Concomitant]
     Active Substance: ALBUTEROL SULFATE
  12. LORATADINE [Concomitant]
     Active Substance: LORATADINE
  13. FUROSEMIDE [Concomitant]
     Active Substance: FUROSEMIDE
  14. ASPIRIN [Concomitant]
     Active Substance: ASPIRIN
  15. MIRALAX [Concomitant]
     Active Substance: POLYETHYLENE GLYCOL 3350
  16. SENNOSIDES [Concomitant]
     Active Substance: SENNOSIDES
  17. Bisacodyl Rect Supp [Concomitant]

REACTIONS (5)
  - Haemoptysis [None]
  - Hilar lymphadenopathy [None]
  - Lung neoplasm malignant [None]
  - Cough [None]
  - Dyspnoea [None]

NARRATIVE: CASE EVENT DATE: 20250516
